FAERS Safety Report 8786159 (Version 1)
Quarter: 2012Q4

REPORT INFORMATION
  Report Type: 
  Country: CA (occurrence: CA)
  Receive Date: 20120914
  Receipt Date: 20120914
  Transmission Date: 20130627
  Serious: Yes (Other)
  Sender: FDA-Public Use
  Company Number: CA-BAXTER-2012BAX016587

PATIENT
  Age: 30 Year
  Sex: Male

DRUGS (2)
  1. GAMMAGARD LIQUID [Suspect]
     Indication: ACUTE DISSEMINATED ENCEPHALOMYELITIS
     Route: 042
  2. GAMMAGARD LIQUID [Suspect]
     Indication: OFF LABEL USE

REACTIONS (1)
  - Drug ineffective [Recovered/Resolved]
